FAERS Safety Report 16897592 (Version 1)
Quarter: 2019Q4

REPORT INFORMATION
  Report Type: Report from Study
  Country: US (occurrence: US)
  Receive Date: 20191009
  Receipt Date: 20191009
  Transmission Date: 20200122
  Serious: Yes (Other)
  Sender: FDA-Public Use
  Company Number: US-ROCHE-2427375

PATIENT
  Sex: Female

DRUGS (1)
  1. OCREVUS [Suspect]
     Active Substance: OCRELIZUMAB
     Indication: RELAPSING MULTIPLE SCLEROSIS
     Dosage: SUBSEQUENT DOSE: 600 MG IV EVERY 6 MONTHS?NEXT DATE OF THERAPY: 08/APR/2019
     Route: 042
     Dates: start: 20190325

REACTIONS (2)
  - Upper respiratory tract infection [Unknown]
  - Sinusitis [Unknown]
